FAERS Safety Report 8447735-1 (Version None)
Quarter: 2012Q2

REPORT INFORMATION
  Report Type: 
  Country: None (occurrence: None)
  Receive Date: 20120619
  Receipt Date: 20120613
  Transmission Date: 20120825
  Serious: No
  Sender: FDA-Public Use
  Company Number: US-PFIZER INC-2012143558

PATIENT
  Sex: Female
  Weight: 132 kg

DRUGS (1)
  1. EFFEXOR XR [Suspect]
     Indication: DEPRESSION
     Dosage: 150 MG, DAILY
     Dates: end: 20120601

REACTIONS (4)
  - MALAISE [None]
  - EMOTIONAL DISORDER [None]
  - ACTIVITIES OF DAILY LIVING IMPAIRED [None]
  - CRYING [None]
